FAERS Safety Report 15377774 (Version 2)
Quarter: 2018Q3

REPORT INFORMATION
  Report Type: Spontaneous
  Country: US (occurrence: US)
  Receive Date: 20180913
  Receipt Date: 20180924
  Transmission Date: 20181010
  Serious: No
  Sender: FDA-Public Use
  Company Number: US-SA-2018SA248619

PATIENT
  Sex: Female
  Weight: 68 kg

DRUGS (10)
  1. SYMBICORT [Concomitant]
     Active Substance: BUDESONIDE\FORMOTEROL FUMARATE DIHYDRATE
  2. ASPIRIN 81 [Concomitant]
     Active Substance: ASPIRIN
  3. VITAMIN C [ASCORBIC ACID] [Concomitant]
  4. BENAZEPRIL HYDROCHLOROTHIAZIDE EG [Concomitant]
  5. PRALUENT [Suspect]
     Active Substance: ALIROCUMAB
     Indication: HYPERLIPIDAEMIA
     Dosage: 75 MG, QOW
     Route: 058
  6. VITAMIN B12 [Concomitant]
     Active Substance: CYANOCOBALAMIN
  7. ALIROCUMAB PREFILLED PEN [Suspect]
     Active Substance: ALIROCUMAB
     Indication: HYPERLIPIDAEMIA
     Route: 058
  8. COENZYME Q10 [Concomitant]
     Active Substance: UBIDECARENONE
  9. MULTIVITAMINS [VITAMINS NOS] [Concomitant]
  10. SPIRIVA [Concomitant]
     Active Substance: TIOTROPIUM BROMIDE MONOHYDRATE

REACTIONS (3)
  - Injection site pain [Unknown]
  - Nasal discomfort [Unknown]
  - Dyspnoea [Unknown]
